FAERS Safety Report 10134170 (Version 1)
Quarter: 2014Q2

REPORT INFORMATION
  Report Type: Spontaneous
  Country: BR (occurrence: BR)
  Receive Date: 20140428
  Receipt Date: 20140428
  Transmission Date: 20141212
  Serious: Yes (Death, Other)
  Sender: FDA-Public Use
  Company Number: BR-ROXANE LABORATORIES, INC.-2014-RO-00650RO

PATIENT
  Age: 51 Year
  Sex: Female

DRUGS (3)
  1. PREDNISONE [Suspect]
     Indication: PULMONARY FIBROSIS
     Dosage: 40 MG
     Route: 065
  2. METHOTREXATE [Suspect]
     Indication: PSORIASIS
     Route: 065
  3. ACITRETIN [Suspect]
     Indication: PSORIASIS
     Dosage: 25 MG
     Route: 065

REACTIONS (3)
  - Infection [Fatal]
  - Acute respiratory failure [Fatal]
  - Pulmonary fibrosis [Unknown]
